FAERS Safety Report 21697438 (Version 1)
Quarter: 2022Q4

REPORT INFORMATION
  Report Type: Spontaneous
  Country: IR (occurrence: IR)
  Receive Date: 20221208
  Receipt Date: 20221208
  Transmission Date: 20230113
  Serious: Yes (Death, Hospitalization, Other)
  Sender: FDA-Public Use
  Company Number: IR-APOTEX-2022AP016662

PATIENT
  Age: 79 Year
  Sex: Male

DRUGS (10)
  1. GABAPENTIN [Suspect]
     Active Substance: GABAPENTIN
     Indication: Myelodysplastic syndrome
     Dosage: UNK, QD
     Route: 065
  2. THALIDOMIDE [Suspect]
     Active Substance: THALIDOMIDE
     Indication: Myelodysplastic syndrome
     Dosage: UNK, QD
     Route: 065
  3. DEFERASIROX [Suspect]
     Active Substance: DEFERASIROX
     Indication: Myelodysplastic syndrome
     Dosage: UNK, QD
     Route: 065
  4. DIMETHICONE [Suspect]
     Active Substance: DIMETHICONE
     Indication: Myelodysplastic syndrome
     Dosage: UNK, QD
     Route: 065
  5. PANTOPRAZOLE [Suspect]
     Active Substance: PANTOPRAZOLE
     Indication: Myelodysplastic syndrome
     Dosage: UNK, QD
     Route: 065
  6. CYANOCOBALAMIN [Suspect]
     Active Substance: CYANOCOBALAMIN
     Indication: Myelodysplastic syndrome
     Dosage: UNK, QD
     Route: 065
  7. FOLIC ACID [Suspect]
     Active Substance: FOLIC ACID
     Indication: Myelodysplastic syndrome
     Dosage: UNK, QD
     Route: 065
  8. ERYTHROPOIETIN [Suspect]
     Active Substance: ERYTHROPOIETIN
     Indication: Myelodysplastic syndrome
     Dosage: UNK
     Route: 065
  9. RIVAROXABAN [Suspect]
     Active Substance: RIVAROXABAN
     Indication: Myelodysplastic syndrome
     Dosage: UNK, T.I.W
     Route: 065
  10. FILGRASTIM [Suspect]
     Active Substance: FILGRASTIM
     Indication: Myelodysplastic syndrome
     Dosage: UNK, EVERY FIFTH DAY
     Route: 065

REACTIONS (2)
  - Gastrointestinal necrosis [Fatal]
  - Cardiac arrest [Fatal]
